FAERS Safety Report 8609750-4 (Version None)
Quarter: 2012Q3

REPORT INFORMATION
  Report Type: 
  Country: None (occurrence: None)
  Receive Date: 20120821
  Receipt Date: 20120814
  Transmission Date: 20120928
  Serious: Yes (Hospitalization)
  Sender: FDA-Public Use
  Company Number: FR-UCBSA-063471

PATIENT
  Age: 80 Year
  Sex: Male

DRUGS (10)
  1. ENALAPRIL MALEATE [Concomitant]
     Dosage: DAILY DOSE: 20 MG
     Dates: start: 20120101
  2. KEPPRA [Suspect]
     Route: 048
     Dates: start: 20120601, end: 20120101
  3. TAMSULOSIN HCL [Concomitant]
     Dates: start: 20120101
  4. VITAMIN D [Concomitant]
     Dosage: 100000 IU/2ML, ONE AMPOULE ON 13 AND 27-AUG-2012
     Route: 048
     Dates: start: 20120101
  5. KEPPRA [Suspect]
     Dosage: (1.5 TABLETS TWICE DAILY)
     Route: 048
     Dates: start: 20120101
  6. PLAVIX [Concomitant]
     Dosage: DAILY DOSE: 75 MG
     Dates: start: 20120101
  7. CLOBAZAM [Concomitant]
     Dosage: 5 MG ONE TABLET TWICE DAILY FOR ONE WEEK AND THEN ONE TABLET DAILY FOR ONE WEEK THEN DISCONTINUATION
     Dates: start: 20120101
  8. CELIPROLOL [Concomitant]
     Dates: start: 20120101
  9. LERCANIDIPINE [Concomitant]
     Dosage: DAILY DOSE: 10 MG
     Dates: start: 20120101
  10. NEURONTIN [Concomitant]
     Dosage: FOR SEVERAL YEARS

REACTIONS (22)
  - HOSTILITY [None]
  - BALANCE DISORDER [None]
  - ATTENTION DEFICIT/HYPERACTIVITY DISORDER [None]
  - FATIGUE [None]
  - VERTIGO [None]
  - DRUG INEFFECTIVE [None]
  - NERVOUSNESS [None]
  - LIVER FUNCTION TEST ABNORMAL [None]
  - DEPRESSION [None]
  - MOOD ALTERED [None]
  - ANGER [None]
  - WEIGHT DECREASED [None]
  - VOMITING [None]
  - MALAISE [None]
  - AGITATION [None]
  - AGGRESSION [None]
  - MEMORY IMPAIRMENT [None]
  - IRRITABILITY [None]
  - SOMNOLENCE [None]
  - DIZZINESS [None]
  - ASTHENIA [None]
  - DECREASED APPETITE [None]
